FAERS Safety Report 8880354 (Version 1)
Quarter: 2012Q4

REPORT INFORMATION
  Report Type: 
  Country: FR (occurrence: FR)
  Receive Date: 20121101
  Receipt Date: 20121101
  Transmission Date: 20130627
  Serious: Yes (Death, Hospitalization, Other)
  Sender: FDA-Public Use
  Company Number: FR-PFIZER INC-2012269258

PATIENT
  Age: 87 Year
  Sex: Male

DRUGS (11)
  1. CORDARONE [Suspect]
     Indication: PAROXYSMAL ATRIAL FIBRILLATION
     Dosage: UNK
     Route: 048
     Dates: start: 2010, end: 20120904
  2. CORDARONE [Suspect]
     Dosage: UNK
     Route: 048
     Dates: start: 20120907, end: 20120912
  3. CORDARONE [Suspect]
     Dosage: UNK
     Route: 048
     Dates: start: 20120917, end: 20120925
  4. ATARAX [Concomitant]
     Dosage: UNK
  5. APROVEL [Concomitant]
     Dosage: UNK
  6. KARDEGIC [Concomitant]
     Dosage: UNK
  7. DALACIN [Concomitant]
     Dosage: UNK
     Dates: start: 201208, end: 201209
  8. ORBENINE [Concomitant]
     Dosage: UNK
     Dates: start: 20120907, end: 20121005
  9. LOVENOX [Concomitant]
     Dosage: UNK
     Dates: start: 20120830, end: 20121005
  10. INEXIUM [Concomitant]
     Dosage: UNK
     Dates: start: 20120906, end: 20121001
  11. AMLOR [Concomitant]
     Dosage: UNK
     Dates: start: 201208, end: 20120912

REACTIONS (7)
  - Interstitial lung disease [Fatal]
  - General physical health deterioration [Fatal]
  - Respiratory failure [Fatal]
  - Atrioventricular block [Unknown]
  - Post procedural fistula [Unknown]
  - Vascular pseudoaneurysm [Unknown]
  - Staphylococcus test positive [Unknown]
